FAERS Safety Report 8929420 (Version 1)
Quarter: 2012Q4

REPORT INFORMATION
  Report Type: 
  Country: US (occurrence: US)
  Receive Date: 20121127
  Receipt Date: 20121127
  Transmission Date: 20130627
  Serious: No
  Sender: FDA-Public Use
  Company Number: US-009507513-1211USA006886

PATIENT
  Sex: Female

DRUGS (2)
  1. MIRALAX [Suspect]
     Indication: PRODUCT USED FOR UNKNOWN INDICATION
     Dosage: 17 g, qid
     Route: 048
     Dates: start: 201209, end: 201210
  2. MIRALAX [Suspect]
     Indication: MEDICAL OBSERVATION
     Dosage: 17 g, bid
     Route: 048
     Dates: start: 201210, end: 20121109

REACTIONS (3)
  - Pruritus [Unknown]
  - Overdose [Unknown]
  - Incorrect drug administration duration [Unknown]
